FAERS Safety Report 4397058-5 (Version None)
Quarter: 2004Q3

REPORT INFORMATION
  Report Type: 
  Country: None (occurrence: None)
  Receive Date: 20040708
  Receipt Date: 20040702
  Transmission Date: 20050211
  Serious: Yes (Death)
  Sender: FDA-Public Use
  Company Number: 200410355BYL

PATIENT
  Age: 75 Year
  Sex: Male
  Weight: 50 kg

DRUGS (10)
  1. ASPIRIN [Suspect]
     Indication: CEREBRAL INFARCTION
     Dosage: 100 MG, QD, ORAL
     Route: 048
     Dates: start: 20040606
  2. CATACLOT (OXAGREL SODIUM) [Concomitant]
     Indication: CEREBRAL INFARCTION
     Dosage: 80 MG, TOTAL DAILY, INTRAVENOUS DRIP
     Route: 041
     Dates: start: 20040526
  3. CEROCRAL (IFENPRODIL TARTRATE) [Concomitant]
     Indication: CEREBRAL INFARCTION
     Dosage: 60 MG, TOTAL DAILY, ORAL
     Route: 048
     Dates: start: 20040605
  4. SOLDOLON [Concomitant]
  5. MEXITIL [Concomitant]
  6. HALCION [Concomitant]
  7. SENNOSIDE [Concomitant]
  8. MERISLOW [Concomitant]
  9. TRAVELMIN [Concomitant]
  10. DAIKENTYUTO [Concomitant]

REACTIONS (2)
  - HAEMODIALYSIS [None]
  - HEPATITIS FULMINANT [None]
